FAERS Safety Report 23810802 (Version 1)
Quarter: 2024Q2

REPORT INFORMATION
  Report Type: Spontaneous
  Country: US (occurrence: US)
  Receive Date: 20240502
  Receipt Date: 20240502
  Transmission Date: 20240716
  Serious: No
  Sender: FDA-Public Use
  Company Number: US-MYLANLABS-2024M1035056

PATIENT
  Sex: Male
  Weight: 169 kg

DRUGS (1)
  1. BUPRENORPHINE AND NALOXONE SUBLINGUAL FILM [Suspect]
     Active Substance: BUPRENORPHINE HYDROCHLORIDE\NALOXONE HYDROCHLORIDE
     Indication: Drug dependence
     Dosage: UNK
     Route: 065
     Dates: start: 2024

REACTIONS (4)
  - Faeces hard [Unknown]
  - Faeces pale [Unknown]
  - Decreased appetite [Unknown]
  - Expired product administered [Unknown]

NARRATIVE: CASE EVENT DATE: 20240101
